FAERS Safety Report 9192754 (Version 4)
Quarter: 2013Q2

REPORT INFORMATION
  Report Type: Spontaneous
  Country: US (occurrence: None)
  Receive Date: 20130325
  Receipt Date: 20130614
  Transmission Date: 20140414
  Serious: Yes (Hospitalization)
  Sender: FDA-Public Use
  Company Number: US-JNJFOC-20130310132

PATIENT
  Age: 68 Year
  Sex: Female
  Weight: 68 kg

DRUGS (3)
  1. DECITABINE [Suspect]
     Indication: ACUTE MYELOID LEUKAEMIA
     Dosage: 20 MG/M2, 1 IN 1 CYCLICAL, INTRAVENOUS
     Route: 042
     Dates: start: 20120313
  2. ACYCLOVIR (ACICLOVIR) (ACICLOVIR) [Concomitant]
  3. DIFLUCAN (FLUCONAZOLE) [Concomitant]

REACTIONS (20)
  - Hypotension [None]
  - Febrile neutropenia [None]
  - Caecitis [None]
  - Anal abscess [None]
  - Sepsis [None]
  - Escherichia test positive [None]
  - Acute sinusitis [None]
  - Chronic sinusitis [None]
  - Supraventricular tachycardia [None]
  - Supraventricular tachycardia [None]
  - Thrombophlebitis [None]
  - Hypophagia [None]
  - Malnutrition [None]
  - Depression [None]
  - Mental status changes [None]
  - Decreased appetite [None]
  - Diverticulitis [None]
  - Staphylococcus test positive [None]
  - Soft tissue infection [None]
  - Delirium [None]
